FAERS Safety Report 18839771 (Version 1)
Quarter: 2021Q1

REPORT INFORMATION
  Report Type: Spontaneous
  Country: US (occurrence: US)
  Receive Date: 20210203
  Receipt Date: 20210203
  Transmission Date: 20210419
  Serious: Yes (Death, Hospitalization)
  Sender: FDA-Public Use
  Company Number: US-CELGENEUS-USA-20210200268

PATIENT
  Age: 77 Year
  Sex: Male

DRUGS (3)
  1. BORTEZOMIB. [Concomitant]
     Active Substance: BORTEZOMIB
     Indication: PLASMACYTOMA
     Route: 065
     Dates: start: 2020
  2. BORTEZOMIB. [Concomitant]
     Active Substance: BORTEZOMIB
     Indication: PLASMA CELL MYELOMA
  3. POMALYST [Suspect]
     Active Substance: POMALIDOMIDE
     Indication: PLASMA CELL MYELOMA
     Dosage: 3 MILLIGRAM
     Route: 048
     Dates: start: 20201218, end: 20210102

REACTIONS (7)
  - Urinary retention [Fatal]
  - Multiple organ dysfunction syndrome [Fatal]
  - Cardiac arrest [Fatal]
  - Septic shock [Fatal]
  - Toxic encephalopathy [Fatal]
  - Renal failure [Fatal]
  - Azotaemia [Fatal]

NARRATIVE: CASE EVENT DATE: 202012
